FAERS Safety Report 26084620 (Version 2)
Quarter: 2025Q4

REPORT INFORMATION
  Report Type: Spontaneous
  Country: US (occurrence: US)
  Receive Date: 20251124
  Receipt Date: 20251211
  Transmission Date: 20260117
  Serious: Yes (Life-Threatening, Hospitalization)
  Sender: TEVA
  Company Number: US-TEVA-VS-3395805

PATIENT
  Age: 38 Year
  Sex: Female

DRUGS (1)
  1. BUPROPION [Suspect]
     Active Substance: BUPROPION
     Indication: Antidepressant therapy
     Dosage: 200 PILLS OF 150MG BUPROPION EXTENDED-RELEASE PILLS
     Route: 048

REACTIONS (6)
  - Cardiac arrest [Recovering/Resolving]
  - Pulmonary embolism [Recovering/Resolving]
  - Overdose [Unknown]
  - Sinus tachycardia [Recovering/Resolving]
  - Hypotension [Recovering/Resolving]
  - Agitation [Recovering/Resolving]
